FAERS Safety Report 20536927 (Version 2)
Quarter: 2022Q1

REPORT INFORMATION
  Report Type: Report from Study
  Country: CA (occurrence: CA)
  Receive Date: 20220302
  Receipt Date: 20220330
  Transmission Date: 20220423
  Serious: Yes (Hospitalization)
  Sender: FDA-Public Use
  Company Number: CA-NOVARTISPH-NVSC2022CA048095

PATIENT
  Age: 18 Year
  Sex: Female
  Weight: 44 kg

DRUGS (4)
  1. ALPELISIB [Suspect]
     Active Substance: ALPELISIB
     Indication: Metastatic neoplasm
     Dosage: 300 MG, QD
     Route: 048
     Dates: start: 20201119, end: 20220222
  2. VITAMIN D3 [Concomitant]
     Active Substance: CHOLECALCIFEROL
     Indication: Supplementation therapy
     Dosage: 200 IU
     Route: 065
     Dates: start: 20201119, end: 20220222
  3. LANSOPRAZOLE [Concomitant]
     Active Substance: LANSOPRAZOLE
     Indication: Gastrointestinal disorder prophylaxis
     Dosage: 30 MG
     Route: 065
     Dates: start: 20201119, end: 20220222
  4. FERROUS SULFATE [Concomitant]
     Active Substance: FERROUS SULFATE
     Indication: Product used for unknown indication
     Dosage: 35 MG, QD (ONCE/WEEK)
     Route: 065

REACTIONS (3)
  - Liver carcinoma ruptured [Unknown]
  - Abdominal pain [Unknown]
  - Constipation [Unknown]

NARRATIVE: CASE EVENT DATE: 20220223
